FAERS Safety Report 22201998 (Version 1)
Quarter: 2023Q2

REPORT INFORMATION
  Report Type: Spontaneous
  Country: US (occurrence: None)
  Receive Date: 20230410
  Receipt Date: 20230410
  Transmission Date: 20230721
  Serious: Yes (Other)
  Sender: FDA-Public Use
  Company Number: None

PATIENT

DRUGS (1)
  1. CLARITIN-D 24 HOUR [Suspect]
     Active Substance: LORATADINE\PSEUDOEPHEDRINE SULFATE
     Indication: Multiple allergies
     Dosage: OTHER QUANTITY : 1 TABLET;?OTHER FREQUENCY : 24 HRS;?
     Route: 048
     Dates: start: 20230309, end: 20230310

REACTIONS (3)
  - Cough [None]
  - Rhinorrhoea [None]
  - Product substitution issue [None]

NARRATIVE: CASE EVENT DATE: 20230309
